FAERS Safety Report 8791178 (Version 1)
Quarter: 2012Q4

REPORT INFORMATION
  Report Type: Spontaneous
  Country: IL (occurrence: None)
  Receive Date: 20120912
  Receipt Date: 20120912
  Transmission Date: 20130627
  Serious: No
  Sender: FDA-Public Use
  Company Number: 2012-003228

PATIENT
  Age: 80 Year
  Sex: Male

DRUGS (1)
  1. ACTONEL (RISEDRONATE SODIUM) TABLET, 150MG [Suspect]
     Route: 048

REACTIONS (2)
  - Leukaemia [None]
  - Pancytopenia [None]
